FAERS Safety Report 4980186-0 (Version None)
Quarter: 2006Q2

REPORT INFORMATION
  Report Type: 
  Country: None (occurrence: None)
  Receive Date: 20060424
  Receipt Date: 20060410
  Transmission Date: 20061013
  Serious: Yes (Disabling)
  Sender: FDA-Public Use
  Company Number: 2006AC00721

PATIENT
  Age: 7 Year
  Sex: Male

DRUGS (3)
  1. PULMICORT [Suspect]
     Indication: ASTHMA
     Dosage: RECEIVED PULMICORT SINCE 17 MONTHS OF AGE, 100 UG AT BEGINNING
     Route: 055
  2. PULMICORT [Suspect]
     Dosage: RECEIVED PULMICORT SINCE 17 MONTHS OF AGE, 200 UG  AVERAGE (400 UG DURING AN EXACERBATION)
     Route: 055
  3. IMMUNOTHERAPY (VACCINES) [Concomitant]
     Indication: IMMUNISATION
     Route: 060

REACTIONS (1)
  - OSTEOCHONDROSIS [None]
